FAERS Safety Report 9414807 (Version 1)
Quarter: 2013Q3

REPORT INFORMATION
  Report Type: Spontaneous
  Country: GB (occurrence: GB)
  Receive Date: 20130723
  Receipt Date: 20130723
  Transmission Date: 20140515
  Serious: Yes (Life-Threatening, Hospitalization, Other)
  Sender: FDA-Public Use
  Company Number: GB-PFIZER INC-2013210291

PATIENT
  Age: 59 Year
  Sex: Female

DRUGS (5)
  1. HYDROCORTISONE SODIUM SUCCINATE [Suspect]
     Dosage: UNK
  2. METYRAPONE [Suspect]
     Indication: CUSHING^S SYNDROME
     Dosage: UNK UKN, UNK
     Dates: start: 19970708
  3. METYRAPONE [Suspect]
     Dosage: 1750 MG, PER DAY (500-500-500-250)
     Dates: start: 19970808
  4. METYRAPONE [Suspect]
     Dosage: 250 MG, 2X/DAY
     Dates: start: 19970826
  5. METYRAPONE [Suspect]
     Dosage: 500 MG, 3X/DAY
     Dates: start: 1998

REACTIONS (3)
  - Adrenal insufficiency [Recovered/Resolved]
  - Ovarian cancer [Unknown]
  - Joint swelling [Not Recovered/Not Resolved]
